FAERS Safety Report 14487521 (Version 1)
Quarter: 2018Q1

REPORT INFORMATION
  Report Type: Report from Study
  Country: US (occurrence: US)
  Receive Date: 20180205
  Receipt Date: 20180205
  Transmission Date: 20180509
  Serious: Yes (Other)
  Sender: FDA-Public Use
  Company Number: US-ASTRAZENECA-2018SE14425

PATIENT
  Age: 64 Year
  Sex: Male
  Weight: 64 kg

DRUGS (2)
  1. INCB039110 [Suspect]
     Active Substance: INVESTIGATIONAL PRODUCT
     Indication: NON-SMALL CELL LUNG CANCER
     Dosage: 300 MG
     Route: 048
     Dates: start: 20170808, end: 20180123
  2. OSIMERTINIB. [Suspect]
     Active Substance: OSIMERTINIB
     Indication: NON-SMALL CELL LUNG CANCER
     Route: 048
     Dates: start: 20170808, end: 20180123

REACTIONS (1)
  - Ejection fraction decreased [Not Recovered/Not Resolved]

NARRATIVE: CASE EVENT DATE: 20180118
